FAERS Safety Report 11564554 (Version 1)
Quarter: 2015Q3

REPORT INFORMATION
  Report Type: Spontaneous
  Country: US (occurrence: US)
  Receive Date: 20150928
  Receipt Date: 20150928
  Transmission Date: 20151125
  Serious: Yes (Other)
  Sender: FDA-Public Use
  Company Number: US-ELI_LILLY_AND_COMPANY-US201509007328

PATIENT
  Sex: Male

DRUGS (1)
  1. AXIRON [Suspect]
     Active Substance: TESTOSTERONE
     Indication: ANDROGEN REPLACEMENT THERAPY
     Dosage: UNK, UNKNOWN
     Route: 065
     Dates: start: 201103, end: 201103

REACTIONS (6)
  - Dyspnoea [Unknown]
  - Renal failure [Unknown]
  - Deep vein thrombosis [Unknown]
  - Prostate cancer [Unknown]
  - Thrombosis [Unknown]
  - Palpitations [Unknown]

NARRATIVE: CASE EVENT DATE: 2013
